FAERS Safety Report 9998118 (Version 1)
Quarter: 2014Q1

REPORT INFORMATION
  Report Type: Spontaneous
  Country: US (occurrence: US)
  Receive Date: 20140311
  Receipt Date: 20140311
  Transmission Date: 20141002
  Serious: Yes (Hospitalization)
  Sender: FDA-Public Use
  Company Number: US-BIOMARINAP-US-2014-102674

PATIENT
  Age: 35 Year
  Sex: Female
  Weight: 94 kg

DRUGS (1)
  1. KUVAN [Suspect]
     Indication: PHENYLKETONURIA
     Dosage: 1900 MG, QD
     Route: 048
     Dates: start: 20120809

REACTIONS (1)
  - Anxiety [Not Recovered/Not Resolved]
